FAERS Safety Report 20680373 (Version 3)
Quarter: 2022Q2

REPORT INFORMATION
  Report Type: Spontaneous
  Country: JP (occurrence: JP)
  Receive Date: 20220406
  Receipt Date: 20220503
  Transmission Date: 20220720
  Serious: Yes (Death, Other)
  Sender: FDA-Public Use
  Company Number: JP-MSD-M2022-13570

PATIENT
  Age: 96 Year
  Sex: Female

DRUGS (3)
  1. MOLNUPIRAVIR [Suspect]
     Active Substance: MOLNUPIRAVIR
     Indication: COVID-19 treatment
     Dosage: 800 MILLIGRAM, BID
     Route: 048
     Dates: start: 20220228, end: 20220302
  2. AZITHROMYCIN [Suspect]
     Active Substance: AZITHROMYCIN
     Indication: Infection
     Dosage: 500 MILLIGRAM, TID
     Route: 065
     Dates: start: 20220225, end: 20220227
  3. MIYA-BM [Concomitant]
     Active Substance: CLOSTRIDIUM BUTYRICUM SPORES STRAIN M-55
     Dosage: 20 MILLIGRAM, TID
     Route: 048
     Dates: start: 202202

REACTIONS (6)
  - Marasmus [Fatal]
  - Depressed level of consciousness [Unknown]
  - Diarrhoea [Unknown]
  - Peripheral coldness [Unknown]
  - Oxygen saturation decreased [Unknown]
  - Faeces soft [Unknown]

NARRATIVE: CASE EVENT DATE: 20220302
